FAERS Safety Report 23502160 (Version 2)
Quarter: 2024Q1

REPORT INFORMATION
  Report Type: Spontaneous
  Country: SK (occurrence: SK)
  Receive Date: 20240208
  Receipt Date: 20240222
  Transmission Date: 20240410
  Serious: Yes (Other)
  Sender: FDA-Public Use
  Company Number: SK-AMGEN-SVKSP2024019655

PATIENT
  Age: 23 Year
  Sex: Female

DRUGS (6)
  1. INOTUZUMAB OZOGAMICIN [Suspect]
     Active Substance: INOTUZUMAB OZOGAMICIN
     Dosage: CYCLE 1
     Route: 065
     Dates: start: 20210827, end: 2021
  2. INOTUZUMAB OZOGAMICIN [Suspect]
     Active Substance: INOTUZUMAB OZOGAMICIN
     Dosage: CYCLE 2
     Route: 065
     Dates: start: 20210917
  3. INOTUZUMAB OZOGAMICIN [Suspect]
     Active Substance: INOTUZUMAB OZOGAMICIN
     Dosage: DAY 15 CYCLE 2 INCREASE DOSE BY 1 MG
     Route: 065
     Dates: start: 20211001
  4. INOTUZUMAB OZOGAMICIN [Suspect]
     Active Substance: INOTUZUMAB OZOGAMICIN
     Dosage: UNK
     Route: 065
     Dates: start: 20220426
  5. BLINATUMOMAB [Suspect]
     Active Substance: BLINATUMOMAB
     Indication: B precursor type acute leukaemia
     Dosage: (1 CYCLE) CONTINUOUS INFUSION VIA PERIPHERALLY INSERTED CENTRAL CATHETER (PICC) FOR 28 DAYS
     Route: 042
     Dates: start: 20210716, end: 20210813
  6. TISAGENLECLEUCEL [Suspect]
     Active Substance: TISAGENLECLEUCEL
     Dosage: UNK
     Route: 065
     Dates: start: 20220526

REACTIONS (4)
  - Sepsis [Unknown]
  - Cytokine release syndrome [Unknown]
  - Immune effector cell-associated neurotoxicity syndrome [Unknown]
  - Neoplasm progression [Unknown]

NARRATIVE: CASE EVENT DATE: 20210717
